FAERS Safety Report 10167551 (Version 1)
Quarter: 2014Q2

REPORT INFORMATION
  Report Type: Spontaneous
  Country: US (occurrence: US)
  Receive Date: 20140512
  Receipt Date: 20140512
  Transmission Date: 20141212
  Serious: No
  Sender: FDA-Public Use
  Company Number: US-BAYER-2014-069406

PATIENT
  Sex: Female

DRUGS (3)
  1. ALEVE CAPLET [Suspect]
     Indication: ANTIINFLAMMATORY THERAPY
     Route: 048
  2. ALEVE CAPLET [Suspect]
     Indication: PAIN
  3. ALEVE CAPLET [Suspect]
     Indication: BACK PAIN

REACTIONS (2)
  - Drug ineffective [None]
  - Drug ineffective [None]
